FAERS Safety Report 5921162-0 (Version None)
Quarter: 2008Q4

REPORT INFORMATION
  Report Type: 
  Country: None (occurrence: None)
  Receive Date: 20081016
  Receipt Date: 20081007
  Transmission Date: 20090506
  Serious: Yes (Hospitalization, Other)
  Sender: FDA-Public Use
  Company Number: US-ABBOTT-08P-163-0480360-00

PATIENT
  Sex: Female

DRUGS (18)
  1. HUMIRA [Suspect]
     Indication: CROHN'S DISEASE
     Dosage: LOADING DOSE
     Route: 058
     Dates: start: 20080111, end: 20080111
  2. HUMIRA [Suspect]
     Route: 058
     Dates: start: 20080125, end: 20080125
  3. MESALAMINE [Concomitant]
     Indication: DRUG USE FOR UNKNOWN INDICATION
     Route: 048
  4. PANTOPRAZOLE SODIUM [Concomitant]
     Indication: DRUG USE FOR UNKNOWN INDICATION
     Route: 048
  5. TRIMETHOBENZAMIDE HYDROCHLORIDE [Concomitant]
     Indication: DRUG USE FOR UNKNOWN INDICATION
     Route: 048
  6. LORAZEPAM [Concomitant]
     Indication: ANXIETY
     Route: 048
  7. VITAMIDYNE A AND D [Concomitant]
     Indication: HAEMORRHOIDS
     Route: 050
  8. 4F [Concomitant]
     Indication: HAEMORRHOIDS
     Dosage: CREAM
     Route: 061
  9. FERROUS SULFATE [Concomitant]
     Indication: DRUG USE FOR UNKNOWN INDICATION
  10. LIDOCAINE HYDROCHLORIDE [Concomitant]
     Indication: HAEMORRHOIDS
     Dosage: OINTMENT
     Route: 061
  11. VENLAFAXINE HYDROCHLORIDE [Concomitant]
     Indication: DRUG USE FOR UNKNOWN INDICATION
     Route: 048
  12. DULOXETINE HYDROCHLORIDE [Concomitant]
     Indication: DRUG USE FOR UNKNOWN INDICATION
     Route: 048
  13. DULOXETINE HYDROCHLORIDE [Concomitant]
     Route: 048
  14. PREDNISONE TAB [Concomitant]
     Indication: DRUG USE FOR UNKNOWN INDICATION
     Route: 048
  15. PREDNISONE TAB [Concomitant]
     Route: 048
  16. CASPOFUNGIN [Concomitant]
     Indication: DRUG USE FOR UNKNOWN INDICATION
  17. BUPROPION HCL [Concomitant]
     Indication: DRUG USE FOR UNKNOWN INDICATION
  18. ENOXAPARIN SODIUM [Concomitant]
     Indication: DRUG USE FOR UNKNOWN INDICATION
     Dosage: 30MG/0.3ML DAILY

REACTIONS (10)
  - ACUTE RESPIRATORY FAILURE [None]
  - BENIGN NEOPLASM OF THYROID GLAND [None]
  - CARDIOGENIC SHOCK [None]
  - CARDIOMYOPATHY [None]
  - CROHN'S DISEASE [None]
  - HAEMORRHOIDS [None]
  - MAJOR DEPRESSION [None]
  - PULMONARY EMBOLISM [None]
  - SEPSIS [None]
  - SEPTIC SHOCK [None]
